FAERS Safety Report 21184037 (Version 5)
Quarter: 2023Q1

REPORT INFORMATION
  Report Type: Report from Study
  Country: CZ (occurrence: None)
  Receive Date: 20220808
  Receipt Date: 20230130
  Transmission Date: 20230418
  Serious: Yes (Hospitalization)
  Sender: FDA-Public Use
  Company Number: CZ-ROCHE-3097023

PATIENT
  Age: 71 Year
  Sex: Male
  Weight: 90.5 kg

DRUGS (35)
  1. GLOFITAMAB [Suspect]
     Active Substance: GLOFITAMAB
     Indication: B-cell lymphoma
     Dosage: ON 10/MAY/2022, THE PATIENT RECEIVED MOST RECENT DOSE 2.5 MG PRIOR TO FIRST EPISODE OF CYTOKINE RELE
     Route: 042
     Dates: start: 20220510
  2. OBINUTUZUMAB [Suspect]
     Active Substance: OBINUTUZUMAB
     Indication: B-cell lymphoma
     Dosage: ON 03/MAY/2022, THE PATIENT RECEIVED MOST RECENT DOSE 1000 MG PRIOR TO SAE.?DOSE LAST STUDY DRUG ADM
     Route: 042
     Dates: start: 20220503
  3. TOCILIZUMAB [Suspect]
     Active Substance: TOCILIZUMAB
     Indication: Cytokine release syndrome
     Route: 042
     Dates: start: 20220525
  4. RITUXIMAB [Concomitant]
     Active Substance: RITUXIMAB
     Route: 065
     Dates: start: 20200122
  5. DEXAMETHASONE [Concomitant]
     Active Substance: DEXAMETHASONE
     Dates: start: 20220503, end: 20220503
  6. DEXAMETHASONE [Concomitant]
     Active Substance: DEXAMETHASONE
     Dates: start: 20220524, end: 20220524
  7. DEXAMETHASONE [Concomitant]
     Active Substance: DEXAMETHASONE
     Dates: start: 20220510, end: 20220510
  8. DEXAMETHASONE [Concomitant]
     Active Substance: DEXAMETHASONE
     Dates: start: 20220531, end: 20220531
  9. BISULEPIN [Concomitant]
     Active Substance: BISULEPIN
     Dates: start: 20220503, end: 20220503
  10. BISULEPIN [Concomitant]
     Active Substance: BISULEPIN
     Dates: start: 20220524, end: 20220524
  11. BISULEPIN [Concomitant]
     Active Substance: BISULEPIN
     Dates: start: 20220510, end: 20220510
  12. BISULEPIN [Concomitant]
     Active Substance: BISULEPIN
     Dates: start: 20220531, end: 20220531
  13. ACETAMINOPHEN [Concomitant]
     Active Substance: ACETAMINOPHEN
     Dates: start: 20220503, end: 20220503
  14. ACETAMINOPHEN [Concomitant]
     Active Substance: ACETAMINOPHEN
     Dates: start: 20220524, end: 20220524
  15. ACETAMINOPHEN [Concomitant]
     Active Substance: ACETAMINOPHEN
     Dates: start: 20220510, end: 20220510
  16. ACETAMINOPHEN [Concomitant]
     Active Substance: ACETAMINOPHEN
     Dates: start: 20220531, end: 20220531
  17. TELMISARTAN [Concomitant]
     Active Substance: TELMISARTAN
     Indication: Hypertension
     Dates: start: 2000
  18. BISOPROLOL [Concomitant]
     Active Substance: BISOPROLOL
     Indication: Hypertension
     Dates: start: 200012
  19. GLICLAZIDE [Concomitant]
     Active Substance: GLICLAZIDE
     Indication: Diabetes mellitus
     Dates: start: 2000
  20. JARDIANCE [Concomitant]
     Active Substance: EMPAGLIFLOZIN
     Indication: Diabetes mellitus
     Dates: start: 2000
  21. ATORVASTATIN [Concomitant]
     Active Substance: ATORVASTATIN
     Indication: Arteriosclerosis
     Dates: start: 2000, end: 20220502
  22. ASPIRIN\GLYCINE [Concomitant]
     Active Substance: ASPIRIN\GLYCINE
     Indication: Peripheral ischaemia
     Dates: start: 2000, end: 20220503
  23. GLUCOPHAGE [Concomitant]
     Active Substance: METFORMIN HYDROCHLORIDE
     Indication: Diabetes mellitus
     Dates: start: 2000
  24. TRESIBA [Concomitant]
     Active Substance: INSULIN DEGLUDEC
     Indication: Diabetes mellitus
     Dates: start: 2000
  25. AMIKACIN [Concomitant]
     Active Substance: AMIKACIN
     Indication: Bacteriuria
     Route: 042
     Dates: start: 20220514, end: 20220516
  26. ACYCLOVIR [Concomitant]
     Active Substance: ACYCLOVIR
     Indication: Herpes simplex
     Route: 048
     Dates: start: 20220516, end: 20220522
  27. ACYCLOVIR [Concomitant]
     Active Substance: ACYCLOVIR
     Route: 048
     Dates: start: 20220523, end: 20220523
  28. NADROPARIN CALCIUM [Concomitant]
     Active Substance: NADROPARIN CALCIUM
     Dates: start: 20220504, end: 20220719
  29. FEBUXOSTAT [Concomitant]
     Active Substance: FEBUXOSTAT
     Dates: start: 20220502, end: 20220503
  30. ALLOPURINOL [Concomitant]
     Active Substance: ALLOPURINOL
     Dates: start: 20220509, end: 20220601
  31. OMEPRAZOLE [Concomitant]
     Active Substance: OMEPRAZOLE
     Dates: start: 20220509, end: 20220601
  32. CEFTAZIDIME [Concomitant]
     Active Substance: CEFTAZIDIME
     Route: 042
     Dates: start: 20220525, end: 20220530
  33. OMEPRAZOLE [Concomitant]
     Active Substance: OMEPRAZOLE
     Indication: Prophylaxis against gastrointestinal ulcer
     Dates: start: 20220525, end: 20220525
  34. FUROSEMIDE [Concomitant]
     Active Substance: FUROSEMIDE
     Indication: Hypervolaemia
     Dates: start: 20220525, end: 20220525
  35. HEPARIN [Concomitant]
     Active Substance: HEPARIN SODIUM
     Dates: start: 20220525, end: 20220527

REACTIONS (3)
  - Cytokine release syndrome [Recovered/Resolved]
  - C-reactive protein increased [Recovered/Resolved]
  - C-reactive protein increased [Recovered/Resolved]

NARRATIVE: CASE EVENT DATE: 20220512
